FAERS Safety Report 17296317 (Version 1)
Quarter: 2020Q1

REPORT INFORMATION
  Report Type: Spontaneous
  Country: FR (occurrence: FR)
  Receive Date: 20200121
  Receipt Date: 20200121
  Transmission Date: 20200409
  Serious: Yes (Other)
  Sender: FDA-Public Use
  Company Number: FR-MYLANLABS-2020M1004929

PATIENT
  Age: 66 Year
  Sex: Male

DRUGS (2)
  1. DOXYCYCLINE. [Suspect]
     Active Substance: DOXYCYCLINE
     Indication: ENDOCARDITIS BACTERIAL
     Dosage: 200 MILLIGRAM, QD
     Route: 048
     Dates: start: 20190925, end: 20191011
  2. PLAQUENIL                          /00072602/ [Suspect]
     Active Substance: HYDROXYCHLOROQUINE DIPHOSPHATE
     Indication: ENDOCARDITIS BACTERIAL
     Dosage: 400 MILLIGRAM, QD
     Route: 048
     Dates: start: 20190928, end: 20191011

REACTIONS (3)
  - Hepatocellular injury [Recovered/Resolved]
  - Weight loss poor [Recovering/Resolving]
  - Eosinophilia [Recovered/Resolved]

NARRATIVE: CASE EVENT DATE: 201910
